FAERS Safety Report 25623917 (Version 1)
Quarter: 2025Q3

REPORT INFORMATION
  Report Type: Spontaneous
  Country: CA (occurrence: CA)
  Receive Date: 20250730
  Receipt Date: 20250730
  Transmission Date: 20251020
  Serious: Yes (Other)
  Sender: BAUSCH AND LOMB
  Company Number: CA-BAUSCH-BH-2025-015609

PATIENT
  Age: 31 Year
  Sex: Male

DRUGS (6)
  1. DIAZEPAM [Interacting]
     Active Substance: DIAZEPAM
     Indication: Product used for unknown indication
     Route: 065
  2. EPIDIOLEX [Interacting]
     Active Substance: CANNABIDIOL
     Indication: Product used for unknown indication
     Route: 065
  3. EPIDIOLEX [Interacting]
     Active Substance: CANNABIDIOL
     Route: 065
  4. EPIDIOLEX [Interacting]
     Active Substance: CANNABIDIOL
     Route: 065
  5. EPIDIOLEX [Interacting]
     Active Substance: CANNABIDIOL
     Route: 065
  6. EPIDIOLEX [Interacting]
     Active Substance: CANNABIDIOL
     Route: 065

REACTIONS (3)
  - Seizure [Recovered/Resolved]
  - Drug interaction [Recovered/Resolved]
  - Somnolence [Recovered/Resolved]
